FAERS Safety Report 9326226 (Version 2)
Quarter: 2013Q3

REPORT INFORMATION
  Report Type: Spontaneous
  Country: BR (occurrence: BR)
  Receive Date: 20130604
  Receipt Date: 20130827
  Transmission Date: 20140515
  Serious: Yes (Other)
  Sender: FDA-Public Use
  Company Number: BR-VERTEX PHARMACEUTICALS INC-2013-006707

PATIENT
  Sex: Female
  Weight: 48 kg

DRUGS (5)
  1. INCIVO [Suspect]
     Indication: HEPATITIS C
     Dosage: UNK
     Route: 065
     Dates: start: 2012, end: 201307
  2. PEGASYS [Suspect]
     Indication: HEPATITIS C
     Dosage: DOSAGE FORM: UNKNOWN
     Route: 065
  3. PEGASYS [Suspect]
     Dosage: DOSAGE FORM: UNKNOWN
     Route: 065
  4. PEGASYS [Suspect]
     Dosage: DOSAGE FORM: UNKNOWN
     Route: 065
     Dates: start: 2012, end: 201307
  5. RIBAVIRIN [Suspect]
     Indication: HEPATITIS C
     Dosage: 200 MG, UNK (120 TABLETS/MONTH)
     Route: 065

REACTIONS (6)
  - Phlebitis [Recovered/Resolved]
  - Varicose vein [Recovered/Resolved]
  - Memory impairment [Not Recovered/Not Resolved]
  - Haemoglobin decreased [Recovered/Resolved]
  - Pruritus [Recovered/Resolved]
  - Platelet count decreased [None]
